FAERS Safety Report 17601718 (Version 1)
Quarter: 2020Q1

REPORT INFORMATION
  Report Type: Spontaneous
  Country: CA (occurrence: CA)
  Receive Date: 20200330
  Receipt Date: 20200330
  Transmission Date: 20200409
  Serious: Yes (Other)
  Sender: FDA-Public Use
  Company Number: CA-ACTELION-A-NJ2017-156873

PATIENT
  Age: 59 Year
  Sex: Female

DRUGS (12)
  1. SPIRIVA [Concomitant]
     Active Substance: TIOTROPIUM BROMIDE MONOHYDRATE
  2. WARFARIN [Concomitant]
     Active Substance: WARFARIN
  3. VENTOLIN [Concomitant]
     Active Substance: ALBUTEROL SULFATE
  4. ATORVASTATIN [Concomitant]
     Active Substance: ATORVASTATIN
  5. SYMBICORT [Concomitant]
     Active Substance: BUDESONIDE\FORMOTEROL FUMARATE DIHYDRATE
  6. CITALOPRAM [Concomitant]
     Active Substance: CITALOPRAM HYDROBROMIDE
  7. TRAZODONE [Concomitant]
     Active Substance: TRAZODONE HYDROCHLORIDE
  8. OPSUMIT [Suspect]
     Active Substance: MACITENTAN
     Indication: PULMONARY ARTERIAL HYPERTENSION
     Dosage: 10 MG, QD
     Route: 048
     Dates: start: 20151112
  9. FUROSEMIDE. [Concomitant]
     Active Substance: FUROSEMIDE
  10. BISOPROLOL [Concomitant]
     Active Substance: BISOPROLOL
  11. TRIAMTERENE. [Concomitant]
     Active Substance: TRIAMTERENE
  12. LOPERAMIDE [Concomitant]
     Active Substance: LOPERAMIDE

REACTIONS (7)
  - Blindness unilateral [Not Recovered/Not Resolved]
  - Visual impairment [Unknown]
  - Pneumonia [Not Recovered/Not Resolved]
  - Nasopharyngitis [Not Recovered/Not Resolved]
  - Sinusitis [Not Recovered/Not Resolved]
  - Malaise [Unknown]
  - Unevaluable event [Unknown]

NARRATIVE: CASE EVENT DATE: 20170707
